FAERS Safety Report 5544057-3 (Version None)
Quarter: 2007Q4

REPORT INFORMATION
  Report Type: 
  Country: None (occurrence: None)
  Receive Date: 20071210
  Receipt Date: 20061121
  Transmission Date: 20080405
  Serious: No
  Sender: FDA-Public Use
  Company Number: US-AMGEN-KDL201163

PATIENT
  Sex: Female

DRUGS (1)
  1. ENBREL [Suspect]
     Indication: RHEUMATOID ARTHRITIS
     Route: 058
     Dates: start: 20060301

REACTIONS (7)
  - ABDOMINAL PAIN UPPER [None]
  - CONTUSION [None]
  - HAEMORRHAGE [None]
  - HEPATIC ENZYME INCREASED [None]
  - INCREASED TENDENCY TO BRUISE [None]
  - INJECTION SITE BRUISING [None]
  - WEIGHT DECREASED [None]
